FAERS Safety Report 8837293 (Version 1)
Quarter: 2012Q4

REPORT INFORMATION
  Report Type: 
  Country: US (occurrence: US)
  Receive Date: 20121012
  Receipt Date: 20121012
  Transmission Date: 20130627
  Serious: Yes (Hospitalization)
  Sender: FDA-Public Use
  Company Number: US-UCBSA-068020

PATIENT
  Age: 62 Year
  Sex: Male
  Weight: 94.9 kg

DRUGS (2)
  1. VIMPAT [Suspect]
     Indication: CONVULSION
     Route: 048
     Dates: start: 20120625, end: 20121002
  2. KEPPRA [Concomitant]
     Indication: CONVULSION
     Route: 048
     Dates: start: 20100810

REACTIONS (1)
  - Hypothermia [Recovering/Resolving]
